FAERS Safety Report 6802218-7 (Version None)
Quarter: 2010Q2

REPORT INFORMATION
  Report Type: 
  Country: None (occurrence: None)
  Receive Date: 20100629
  Receipt Date: 20081110
  Transmission Date: 20101027
  Serious: No
  Sender: FDA-Public Use
  Company Number: US-PFIZER INC-2006004941

PATIENT
  Sex: Male
  Weight: 102.06 kg

DRUGS (3)
  1. VIAGRA [Suspect]
     Indication: ERECTILE DYSFUNCTION
  2. ALL OTHER THERAPEUTIC PRODUCTS [Concomitant]
  3. BUSPAR [Concomitant]
     Route: 065

REACTIONS (5)
  - CHROMATOPSIA [None]
  - DRUG INEFFECTIVE [None]
  - DYSPEPSIA [None]
  - ERECTILE DYSFUNCTION [None]
  - FLUSHING [None]
